FAERS Safety Report 17084401 (Version 3)
Quarter: 2020Q1

REPORT INFORMATION
  Report Type: Spontaneous
  Country: BR (occurrence: BR)
  Receive Date: 20191127
  Receipt Date: 20200120
  Transmission Date: 20200409
  Serious: Yes (Other)
  Sender: FDA-Public Use
  Company Number: BR-GLAXOSMITHKLINE-BR2019AMR211928

PATIENT
  Sex: Male
  Weight: 25 kg

DRUGS (2)
  1. SERETIDE [Suspect]
     Active Substance: FLUTICASONE PROPIONATE\SALMETEROL XINAFOATE
     Indication: ASTHMA
     Dosage: UNK
  2. SERETIDE [Suspect]
     Active Substance: FLUTICASONE PROPIONATE\SALMETEROL XINAFOATE
     Indication: ASTHMA
     Dosage: 4 DF, BID(2 JETS IN THE MORNING AND 2 JETS AT NIGHT)

REACTIONS (5)
  - Product selection error [Unknown]
  - Product use issue [Unknown]
  - Wrong technique in product usage process [Unknown]
  - Rhinitis allergic [Unknown]
  - Asthmatic crisis [Unknown]
